FAERS Safety Report 8904745 (Version 1)
Quarter: 2012Q4

REPORT INFORMATION
  Report Type: 
  Country: US (occurrence: US)
  Receive Date: 20121109
  Receipt Date: 20121109
  Transmission Date: 20130627
  Serious: No
  Sender: FDA-Public Use
  Company Number: US-ASTRAZENECA-2012SE79150

PATIENT
  Age: 69 Year
  Sex: Male
  Weight: 52.6 kg

DRUGS (10)
  1. SYMBICORT PMDI [Suspect]
     Indication: CHRONIC OBSTRUCTIVE PULMONARY DISEASE
     Dosage: 160/4.5 MCG 2 PUFFS BID
     Route: 055
     Dates: start: 201204
  2. SPIRIVA [Concomitant]
  3. ALBUTEROL [Concomitant]
     Dosage: AS REQUIRED
  4. BRIMONIDINE TARTRATE [Concomitant]
  5. LASIX [Concomitant]
  6. PROBIOTICS [Concomitant]
  7. FISH OIL [Concomitant]
  8. CHLOR-CON [Concomitant]
  9. VITAMIN B12 [Concomitant]
  10. CALCIUM + D [Concomitant]

REACTIONS (2)
  - Dyspnoea [Unknown]
  - Drug ineffective [Unknown]
